FAERS Safety Report 9525829 (Version 1)
Quarter: 2013Q1

REPORT INFORMATION
  Report Type: Spontaneous
  Country: US (occurrence: None)
  Receive Date: 20130314
  Receipt Date: 20130314
  Transmission Date: 20140127
  Serious: No
  Sender: FDA-Public Use
  Company Number: 1301USA006105

PATIENT
  Age: 49 Year
  Sex: Female

DRUGS (3)
  1. RIBAVIRIN [Suspect]
     Indication: HEPATITIS C
     Dates: start: 20121127
  2. VICTRELIS [Suspect]
     Indication: HEPATITIS C
     Dates: start: 20121227
  3. PEGASYS [Suspect]
     Indication: HEPATITIS C
     Dates: start: 20121127

REACTIONS (1)
  - Anaemia [None]
